FAERS Safety Report 5371420-6 (Version None)
Quarter: 2007Q2

REPORT INFORMATION
  Report Type: 
  Country: None (occurrence: None)
  Receive Date: 20070622
  Receipt Date: 20070611
  Transmission Date: 20071010
  Serious: Yes (Death)
  Sender: FDA-Public Use
  Company Number: 157646USA

PATIENT
  Sex: Female

DRUGS (1)
  1. BACTRIM [Suspect]
     Dosage: 800 MG/160 MG, ORAL
     Route: 048

REACTIONS (6)
  - CLOSTRIDIUM DIFFICILE COLITIS [None]
  - GAIT DISTURBANCE [None]
  - LIP DISORDER [None]
  - PYREXIA [None]
  - SPEECH DISORDER [None]
  - TREMOR [None]
